FAERS Safety Report 4806450-3 (Version None)
Quarter: 2005Q4

REPORT INFORMATION
  Report Type: 
  Country: None (occurrence: None)
  Receive Date: 20051019
  Receipt Date: 20051010
  Transmission Date: 20060501
  Serious: Yes (Other)
  Sender: FDA-Public Use
  Company Number: 2005PV002674

PATIENT
  Sex: Male

DRUGS (1)
  1. BYETTA [Suspect]
     Dates: start: 20050101, end: 20050101

REACTIONS (4)
  - ADRENAL INSUFFICIENCY [None]
  - HYPOTENSION [None]
  - NAUSEA [None]
  - WEIGHT DECREASED [None]
